FAERS Safety Report 4863665-6 (Version None)
Quarter: 2005Q4

REPORT INFORMATION
  Report Type: 
  Country: None (occurrence: None)
  Receive Date: 20051222
  Receipt Date: 20050616
  Transmission Date: 20060501
  Serious: No
  Sender: FDA-Public Use
  Company Number: US-GLAXOSMITHKLINE-A0563017A

PATIENT
  Sex: Female

DRUGS (3)
  1. FLONASE [Suspect]
     Dosage: 50MCG TWICE PER DAY
     Route: 045
  2. LORATADINE [Concomitant]
  3. SUDAFED 12 HOUR [Concomitant]

REACTIONS (1)
  - SNEEZING [None]
